FAERS Safety Report 9768932 (Version 1)
Quarter: 2013Q4

REPORT INFORMATION
  Report Type: Spontaneous
  Country: GB (occurrence: None)
  Receive Date: 20131216
  Receipt Date: 20131216
  Transmission Date: 20140711
  Serious: Yes (Other)
  Sender: FDA-Public Use
  Company Number: 2013TP000528

PATIENT
  Age: 64 Year
  Sex: Male
  Weight: 80 kg

DRUGS (5)
  1. LIDOCAINE [Suspect]
     Indication: PRODUCT USED FOR UNKNOWN INDICATION
  2. AMIODARONE [Suspect]
     Indication: ATRIAL FIBRILLATION
     Route: 048
     Dates: start: 201303, end: 20130813
  3. ATORVASTATIN [Concomitant]
  4. OMEGA-3 TRIGLYCERIDES (OMEGA-3 FATTY ACID) [Concomitant]
  5. WARFARIN [Concomitant]

REACTIONS (6)
  - Dizziness postural [None]
  - Dizziness [None]
  - Heart rate decreased [None]
  - Skin discolouration [None]
  - Drug interaction [None]
  - Pallor [None]
